FAERS Safety Report 4700621-2 (Version None)
Quarter: 2005Q2

REPORT INFORMATION
  Report Type: 
  Country: None (occurrence: None)
  Receive Date: 20050627
  Receipt Date: 20050614
  Transmission Date: 20051028
  Serious: Yes (Other)
  Sender: FDA-Public Use
  Company Number: 2005075657

PATIENT
  Age: 18 Year
  Sex: Female
  Weight: 63.5036 kg

DRUGS (1)
  1. DEPO-PROVERA [Suspect]
     Indication: CONTRACEPTION
     Dosage: 150 MG (150 MG, FIRST INJECTION/3 MONTHS), INTRAMUSCULAR
     Route: 030
     Dates: start: 20050415, end: 20050415

REACTIONS (6)
  - BACK PAIN [None]
  - CYSTITIS [None]
  - KIDNEY ENLARGEMENT [None]
  - METRORRHAGIA [None]
  - URINARY TRACT INFECTION [None]
  - VAGINAL DISCHARGE [None]
